FAERS Safety Report 4807579-6 (Version None)
Quarter: 2005Q4

REPORT INFORMATION
  Report Type: 
  Country: None (occurrence: None)
  Receive Date: 20051020
  Receipt Date: 20051010
  Transmission Date: 20060501
  Serious: Yes (Other)
  Sender: FDA-Public Use
  Company Number: 2005140440

PATIENT
  Sex: Male

DRUGS (3)
  1. GEODON [Suspect]
     Indication: ILL-DEFINED DISORDER
  2. XANAX [Suspect]
     Indication: ANXIETY
  3. WELLBUTRIN [Suspect]
     Indication: ILL-DEFINED DISORDER

REACTIONS (4)
  - ANXIETY [None]
  - FEELING ABNORMAL [None]
  - GUN SHOT WOUND [None]
  - SELF INJURIOUS BEHAVIOUR [None]
